FAERS Safety Report 25967820 (Version 1)
Quarter: 2025Q4

REPORT INFORMATION
  Report Type: Spontaneous
  Country: US (occurrence: US)
  Receive Date: 20251028
  Receipt Date: 20251028
  Transmission Date: 20260117
  Serious: No
  Sender: CIPLA
  Company Number: US-CIPLA LTD.-2025US13218

PATIENT

DRUGS (2)
  1. ALBUTEROL [Suspect]
     Active Substance: ALBUTEROL
     Indication: Cough
     Dosage: 180 MICROGRAM, QID (EVERY 6 HOURS)
     Route: 065
     Dates: start: 20251007, end: 202510
  2. ALBUTEROL [Suspect]
     Active Substance: ALBUTEROL
     Indication: Pneumonia

REACTIONS (5)
  - Drug dose omission by device [Unknown]
  - Off label use [Unknown]
  - Product packaging quantity issue [Unknown]
  - Device delivery system issue [Unknown]
  - Product delivery mechanism issue [Unknown]

NARRATIVE: CASE EVENT DATE: 20251007
